FAERS Safety Report 13715212 (Version 3)
Quarter: 2020Q2

REPORT INFORMATION
  Report Type: Spontaneous
  Country: NL (occurrence: NL)
  Receive Date: 20170704
  Receipt Date: 20200514
  Transmission Date: 20200713
  Serious: Yes (Other)
  Sender: FDA-Public Use
  Company Number: NL-APOPHARMA-2017AP013748

PATIENT
  Age: 63 Year
  Sex: Female

DRUGS (2)
  1. FERRIPROX [Suspect]
     Active Substance: DEFERIPRONE
     Indication: NEURODEGENERATIVE DISORDER
     Dosage: 65 MG/KG, QD
     Route: 065
  2. FERRIPROX [Suspect]
     Active Substance: DEFERIPRONE
     Dosage: 1500 MG, BID
     Route: 065

REACTIONS (3)
  - Anaemia [Unknown]
  - Agranulocytosis [Unknown]
  - Urosepsis [Unknown]
